FAERS Safety Report 6078412-2 (Version None)
Quarter: 2009Q1

REPORT INFORMATION
  Report Type: 
  Country: None (occurrence: None)
  Receive Date: 20090212
  Receipt Date: 20090210
  Transmission Date: 20090719
  Serious: Yes (Other)
  Sender: FDA-Public Use
  Company Number: 041077

PATIENT
  Age: 43 Year
  Sex: Female

DRUGS (5)
  1. TRAZODONE HCL [Suspect]
     Indication: SLEEP DISORDER
     Dosage: 50 MG, QD, ORAL
     Route: 048
     Dates: start: 20070801
  2. IMITREX [Suspect]
     Indication: MIGRAINE
     Dosage: 100 MG, AS REQUIRED, ORAL
     Route: 048
     Dates: start: 20081001, end: 20081220
  3. FLUOXETINE [Suspect]
     Indication: PAIN
     Dosage: 40 MG, QD, ORAL
     Route: 048
     Dates: start: 20070801
  4. ALPRAZOLAM [Concomitant]
  5. ACETAMINOPHEN [Concomitant]

REACTIONS (8)
  - AGGRESSION [None]
  - CHEST DISCOMFORT [None]
  - DRUG INTERACTION [None]
  - DYSPHAGIA [None]
  - DYSPNOEA [None]
  - PANIC REACTION [None]
  - THROAT TIGHTNESS [None]
  - WEIGHT DECREASED [None]
